FAERS Safety Report 10426249 (Version 1)
Quarter: 2014Q3

REPORT INFORMATION
  Report Type: Spontaneous
  Country: CA (occurrence: None)
  Receive Date: 20140902
  Receipt Date: 20140902
  Transmission Date: 20150326
  Serious: No
  Sender: FDA-Public Use
  Company Number: None

PATIENT
  Age: 66 Year
  Sex: Female
  Weight: 74.84 kg

DRUGS (13)
  1. ATORVASTATIN [Concomitant]
     Active Substance: ATORVASTATIN
  2. VITAMIN D3 [Concomitant]
     Active Substance: CHOLECALCIFEROL
  3. VITAMIN B12 [Concomitant]
     Active Substance: CYANOCOBALAMIN
  4. HYDROCHLOROTHIAZIDE. [Concomitant]
     Active Substance: HYDROCHLOROTHIAZIDE
  5. SANDOZ - VALSARTAN, VALSARTAN [Suspect]
     Active Substance: VALSARTAN
     Indication: BLOOD PRESSURE ABNORMAL
     Dosage: 80 MG 1 TABLET PER DAY, ONCE DAILY, MOUTH
     Route: 048
     Dates: start: 20140610, end: 20140808
  6. COD LIVER OIL [Concomitant]
     Active Substance: COD LIVER OIL
  7. RABEPRAZOLE SODIUM. [Concomitant]
     Active Substance: RABEPRAZOLE SODIUM
  8. LOSARTAN POTASSIUM. [Concomitant]
     Active Substance: LOSARTAN POTASSIUM
  9. AMITRIPTYLINE [Concomitant]
     Active Substance: AMITRIPTYLINE
  10. SANDOZ - VALSARTAN, VALSARTAN [Suspect]
     Active Substance: VALSARTAN
     Indication: JOINT SWELLING
     Dosage: 80 MG 1 TABLET PER DAY, ONCE DAILY, MOUTH
     Route: 048
     Dates: start: 20140610, end: 20140808
  11. ATENOLOL. [Concomitant]
     Active Substance: ATENOLOL
  12. CALCIUM MAGNESSIUM [Concomitant]
  13. OMEGA 3 [Concomitant]
     Active Substance: OMEGA-3 FATTY ACIDS

REACTIONS (3)
  - Dizziness [None]
  - Headache [None]
  - Hot flush [None]

NARRATIVE: CASE EVENT DATE: 20140611
